FAERS Safety Report 5350035-X (Version None)
Quarter: 2007Q2

REPORT INFORMATION
  Report Type: 
  Country: None (occurrence: None)
  Receive Date: 20070510
  Receipt Date: 20061012
  Transmission Date: 20071010
  Serious: Yes (Other)
  Sender: FDA-Public Use
  Company Number: 2006S1000221

PATIENT
  Age: 49 Year
  Sex: Male

DRUGS (6)
  1. CUBICIN [Suspect]
     Indication: ENTEROCOCCAL BACTERAEMIA
     Dosage: 6 MG/KG; Q48H; IV
     Route: 042
     Dates: start: 20061009, end: 20061012
  2. CUBICIN [Suspect]
     Indication: PATHOGEN RESISTANCE
     Dosage: 6 MG/KG; Q48H; IV
     Route: 042
     Dates: start: 20061009, end: 20061012
  3. INSULIN [Concomitant]
  4. FUROSEMIDE [Concomitant]
  5. IMIPENEM [Concomitant]
  6. VANCOMYCIN HCL [Concomitant]

REACTIONS (2)
  - INTERNATIONAL NORMALISED RATIO INCREASED [None]
  - RENAL FAILURE [None]
